FAERS Safety Report 17442922 (Version 1)
Quarter: 2020Q1

REPORT INFORMATION
  Report Type: Spontaneous
  Country: US (occurrence: US)
  Receive Date: 20200221
  Receipt Date: 20200221
  Transmission Date: 20200409
  Serious: Yes (Hospitalization, Other)
  Sender: FDA-Public Use
  Company Number: US-CELLTRION INC.-2020US019071

PATIENT

DRUGS (1)
  1. RITUXIMAB (UNKNOWN) [Suspect]
     Active Substance: RITUXIMAB
     Indication: MULTIPLE SCLEROSIS
     Dosage: UNK, MAINTENANCE THERAPY EVERY 6 MONTHS

REACTIONS (2)
  - Neutropenia [Recovering/Resolving]
  - Product use in unapproved indication [Unknown]
